FAERS Safety Report 16092700 (Version 1)
Quarter: 2019Q1

REPORT INFORMATION
  Report Type: Spontaneous
  Country: US (occurrence: US)
  Receive Date: 20190319
  Receipt Date: 20190319
  Transmission Date: 20190418
  Serious: Yes (Hospitalization, Other)
  Sender: FDA-Public Use
  Company Number: US-BAXTER-2019BAX005073

PATIENT
  Age: 11 Year
  Sex: Female
  Weight: 49.6 kg

DRUGS (2)
  1. METRONIDAZOLE INJECTION, USP [Suspect]
     Active Substance: METRONIDAZOLE
     Indication: GASTROINTESTINAL BACTERIAL OVERGROWTH
     Dosage: 1 WEEK A MONTH
     Route: 065
  2. LOPERAMIDE [Concomitant]
     Active Substance: LOPERAMIDE
     Indication: ANAL INCONTINENCE
     Route: 065

REACTIONS (1)
  - Vitamin B1 deficiency [Recovered/Resolved]
